FAERS Safety Report 13597924 (Version 1)
Quarter: 2017Q2

REPORT INFORMATION
  Report Type: Spontaneous
  Country: JP (occurrence: JP)
  Receive Date: 20170531
  Receipt Date: 20170531
  Transmission Date: 20170830
  Serious: Yes (Other)
  Sender: FDA-Public Use
  Company Number: JP-ELI_LILLY_AND_COMPANY-JP201705011417

PATIENT
  Age: 64 Year
  Sex: Male

DRUGS (1)
  1. ERBITUX [Suspect]
     Active Substance: CETUXIMAB
     Indication: HEAD AND NECK CANCER
     Dosage: UNK UNK, UNKNOWN
     Route: 041
     Dates: start: 20150127, end: 20150603

REACTIONS (5)
  - Ileus [Recovered/Resolved]
  - Hyponatraemia [Recovered/Resolved]
  - Dehydration [Unknown]
  - Blood creatinine increased [Recovered/Resolved]
  - Blood urea increased [Recovered/Resolved]

NARRATIVE: CASE EVENT DATE: 2015
